FAERS Safety Report 6203643-8 (Version None)
Quarter: 2009Q2

REPORT INFORMATION
  Report Type: 
  Country: None (occurrence: None)
  Receive Date: 20090522
  Receipt Date: 20090522
  Transmission Date: 20091009
  Serious: Yes (Hospitalization)
  Sender: FDA-Public Use
  Company Number: None

PATIENT
  Age: 61 Year
  Sex: Female
  Weight: 55.9 kg

DRUGS (16)
  1. CARBOPLATIN [Suspect]
     Indication: NON-SMALL CELL LUNG CANCER
     Dosage: AUC 6 IV BOLUS
     Route: 040
     Dates: start: 20090515, end: 20090519
  2. BEVACIZUMAB [Suspect]
     Indication: NON-SMALL CELL LUNG CANCER
     Dosage: 15 MG/KG IV BOLUS
     Route: 040
     Dates: start: 20090515, end: 20090519
  3. BORTEZOMIB [Suspect]
     Indication: NON-SMALL CELL LUNG CANCER
     Dosage: 1.8 MG/M2 IV BOLUS
     Route: 040
     Dates: start: 20090515, end: 20090515
  4. BUPROPION HCL [Concomitant]
  5. OMEPRAZOLE [Concomitant]
  6. CYMBALTA [Concomitant]
  7. TRIAMTERENE [Concomitant]
  8. TRAZODONE HCL [Concomitant]
  9. SIMVASTATIN [Concomitant]
  10. FISH OIL [Concomitant]
  11. M.V.I. [Concomitant]
  12. ACETAMINOPHEN [Concomitant]
  13. DIPHENHYDRAMINE HCL [Concomitant]
  14. HYDROCODONE BITARTRATE + ACETAMINOPHEN [Concomitant]
  15. OXYCODONE [Concomitant]
  16. OXYCONTIN [Concomitant]

REACTIONS (6)
  - COMPUTERISED TOMOGRAM ABNORMAL [None]
  - CONSTIPATION [None]
  - DISEASE PROGRESSION [None]
  - INTESTINAL OBSTRUCTION [None]
  - MUSCULOSKELETAL CHEST PAIN [None]
  - PAIN [None]
